FAERS Safety Report 17015705 (Version 1)
Quarter: 2019Q4

REPORT INFORMATION
  Report Type: Spontaneous
  Country: GB (occurrence: GB)
  Receive Date: 20191111
  Receipt Date: 20191111
  Transmission Date: 20200122
  Serious: Yes (Other)
  Sender: FDA-Public Use
  Company Number: GB-PFIZER INC-2019479730

PATIENT
  Age: 73 Year
  Sex: Male
  Weight: 81.19 kg

DRUGS (4)
  1. GAVISCON ADVANCED [Concomitant]
     Dosage: 10 ML, 4X/DAY
     Dates: start: 20190827
  2. AMLODIPINE [Concomitant]
     Active Substance: AMLODIPINE BESYLATE
     Dosage: 1 DF, DAILY
     Dates: start: 20190730
  3. PANTOPRAZOLE [Concomitant]
     Active Substance: PANTOPRAZOLE
     Dosage: EVERY DAY
     Dates: start: 20190730
  4. PREGABALIN. [Suspect]
     Active Substance: PREGABALIN
     Indication: PAIN
     Dosage: UNK
     Route: 048
     Dates: start: 20190513, end: 20190513

REACTIONS (6)
  - Rash [Recovered/Resolved]
  - Pruritus [Unknown]
  - Prostatic dysplasia [Unknown]
  - Disease recurrence [Unknown]
  - Hypertension [Unknown]
  - Hordeolum [Unknown]

NARRATIVE: CASE EVENT DATE: 20190513
